FAERS Safety Report 4322311-0 (Version None)
Quarter: 2004Q1

REPORT INFORMATION
  Report Type: 
  Country: None (occurrence: None)
  Receive Date: 20040319
  Receipt Date: 20040304
  Transmission Date: 20041129
  Serious: Yes (Death)
  Sender: FDA-Public Use
  Company Number: 2004030005

PATIENT
  Age: 30 Year
  Sex: Male

DRUGS (3)
  1. MEPROBAMATE [Suspect]
     Dates: start: 19980801, end: 19980801
  2. MIANSERINE (MIANSERIN) [Suspect]
     Dates: start: 19980801, end: 19980801
  3. STABLON (TIANEPTINE) [Suspect]
     Dates: start: 19980801, end: 19980801

REACTIONS (4)
  - DRUG TOXICITY [None]
  - HAEMATOMA [None]
  - INJURY [None]
  - VICTIM OF CRIME [None]
